FAERS Safety Report 10541458 (Version 5)
Quarter: 2015Q3

REPORT INFORMATION
  Report Type: Report from Study
  Country: DE (occurrence: DE)
  Receive Date: 20141024
  Receipt Date: 20150904
  Transmission Date: 20151125
  Serious: Yes (Life-Threatening, Hospitalization)
  Sender: FDA-Public Use
  Company Number: DE-TEVA-517812USA

PATIENT
  Age: 78 Year
  Sex: Male

DRUGS (5)
  1. BENDAMUSTINE HYDROCHLORIDE [Suspect]
     Active Substance: BENDAMUSTINE HYDROCHLORIDE
     Indication: CHRONIC LYMPHOCYTIC LEUKAEMIA
     Route: 042
     Dates: start: 20140505, end: 20140805
  2. DECORTIN [Concomitant]
     Active Substance: PREDNISONE
     Indication: HAEMOLYSIS
     Dosage: 100 MG, ONCE DAILY (WEANED OFF)
     Route: 065
     Dates: start: 20140602
  3. DECORTIN [Concomitant]
     Active Substance: PREDNISONE
     Dosage: UNK, UNKNOWN FREQ.
     Route: 065
     Dates: start: 20140603
  4. BENDAMUSTINE HYDROCHLORIDE [Suspect]
     Active Substance: BENDAMUSTINE HYDROCHLORIDE
     Route: 042
     Dates: start: 20140505, end: 20140805
  5. ERYTHROZYTEN KONZENTRAT [Concomitant]
     Indication: HAEMOLYSIS
     Dosage: UNK UNK, UNKNOWN FREQ.
     Route: 065
     Dates: start: 20140602

REACTIONS (1)
  - Autoimmune haemolytic anaemia [Recovered/Resolved]

NARRATIVE: CASE EVENT DATE: 20140603
